FAERS Safety Report 24374404 (Version 16)
Quarter: 2025Q3

REPORT INFORMATION
  Report Type: Spontaneous
  Country: US (occurrence: US)
  Receive Date: 20240927
  Receipt Date: 20250909
  Transmission Date: 20251021
  Serious: Yes (Hospitalization, Other)
  Sender: PFIZER
  Company Number: US-PFIZER INC-PV202400095132

PATIENT
  Age: 56 Year
  Sex: Male
  Weight: 81.1 kg

DRUGS (6)
  1. ADCETRIS [Suspect]
     Active Substance: BRENTUXIMAB VEDOTIN
     Indication: Follicular lymphoma
     Route: 042
  2. ADCETRIS [Suspect]
     Active Substance: BRENTUXIMAB VEDOTIN
     Indication: Hodgkin^s disease
     Dates: end: 20250516
  3. ADCETRIS [Suspect]
     Active Substance: BRENTUXIMAB VEDOTIN
     Dosage: 138 MG EVERY 21 DAYS
  4. ADCETRIS [Suspect]
     Active Substance: BRENTUXIMAB VEDOTIN
  5. ADCETRIS [Suspect]
     Active Substance: BRENTUXIMAB VEDOTIN
     Dosage: 123 MG EVERY 21 DAYS
  6. OPDIVO [Concomitant]
     Active Substance: NIVOLUMAB

REACTIONS (7)
  - Hodgkin^s disease [Unknown]
  - Malignant neoplasm progression [Unknown]
  - Illness [Unknown]
  - Off label use [Unknown]
  - Product use issue [Unknown]
  - Weight fluctuation [Not Recovered/Not Resolved]
  - Weight decreased [Unknown]
